FAERS Safety Report 13666441 (Version 1)
Quarter: 2017Q2

REPORT INFORMATION
  Report Type: Spontaneous
  Country: US (occurrence: US)
  Receive Date: 20170619
  Receipt Date: 20170619
  Transmission Date: 20170830
  Serious: Yes (Other)
  Sender: FDA-Public Use
  Company Number: US-ROCHE-1374148

PATIENT
  Sex: Female

DRUGS (7)
  1. XELODA [Suspect]
     Active Substance: CAPECITABINE
     Route: 048
     Dates: start: 20140819
  2. BENADRYL [Concomitant]
     Active Substance: DIPHENHYDRAMINE HYDROCHLORIDE
  3. SELENIUM [Concomitant]
     Active Substance: SELENIUM
  4. XELODA [Suspect]
     Active Substance: CAPECITABINE
     Indication: COLON CANCER
     Route: 048
     Dates: start: 20140228
  5. XELODA [Suspect]
     Active Substance: CAPECITABINE
     Dosage: BID 2 WEEKS ON 2 WEEKS OFF
     Route: 048
     Dates: start: 20140325
  6. XELODA [Suspect]
     Active Substance: CAPECITABINE
     Route: 048
     Dates: start: 20140227
  7. COUMADIN [Concomitant]
     Active Substance: WARFARIN SODIUM

REACTIONS (11)
  - International normalised ratio increased [Unknown]
  - Peripheral swelling [Not Recovered/Not Resolved]
  - Pruritus [Unknown]
  - Drug dose omission [Unknown]
  - Hypoaesthesia [Unknown]
  - Erythema [Not Recovered/Not Resolved]
  - Skin exfoliation [Unknown]
  - Skin ulcer [Unknown]
  - Palmar erythema [Unknown]
  - Hypoacusis [Unknown]
  - Visual impairment [Unknown]
